FAERS Safety Report 5673794-5 (Version None)
Quarter: 2008Q1

REPORT INFORMATION
  Report Type: 
  Country: None (occurrence: None)
  Receive Date: 20080319
  Receipt Date: 20080307
  Transmission Date: 20080703
  Serious: Yes (Other)
  Sender: FDA-Public Use
  Company Number: US-PFIZER INC-2008022776

PATIENT
  Sex: Male
  Weight: 79.545 kg

DRUGS (2)
  1. CHANTIX [Suspect]
     Indication: SMOKING CESSATION THERAPY
     Dates: start: 20070101, end: 20080101
  2. ALCOHOL [Concomitant]

REACTIONS (4)
  - FEELING ABNORMAL [None]
  - HOMICIDAL IDEATION [None]
  - ILL-DEFINED DISORDER [None]
  - SUICIDAL IDEATION [None]
